FAERS Safety Report 11722601 (Version 2)
Quarter: 2015Q4

REPORT INFORMATION
  Report Type: Spontaneous
  Country: US (occurrence: US)
  Receive Date: 20151111
  Receipt Date: 20151130
  Transmission Date: 20160304
  Serious: No
  Sender: FDA-Public Use
  Company Number: US-PFIZER INC-2015368461

PATIENT
  Age: 73 Year
  Sex: Female
  Weight: 83 kg

DRUGS (2)
  1. GABAPENTIN. [Suspect]
     Active Substance: GABAPENTIN
     Indication: NEUROPATHY PERIPHERAL
     Dosage: 300 MG ONE IN THE MORNING, ONE IN THE NOON AND 3 TABLETS AT NIGHT
     Dates: end: 20150801
  2. NEURONTIN [Suspect]
     Active Substance: GABAPENTIN
     Indication: NEUROPATHY PERIPHERAL
     Dosage: 300 MG ONE IN THE MORNING, ONE IN THE NOON AND 3 TABLETS AT NIGHT
     Dates: end: 20150801

REACTIONS (1)
  - Drug ineffective for unapproved indication [Unknown]
